FAERS Safety Report 22275022 (Version 1)
Quarter: 2023Q2

REPORT INFORMATION
  Report Type: Spontaneous
  Country: DE (occurrence: DE)
  Receive Date: 20230502
  Receipt Date: 20230502
  Transmission Date: 20230722
  Serious: Yes (Other)
  Sender: FDA-Public Use
  Company Number: DE-EMBRYOTOX-202211008

PATIENT
  Sex: Female
  Weight: 56 kg

DRUGS (3)
  1. FLUOXETINE [Suspect]
     Active Substance: FLUOXETINE HYDROCHLORIDE
     Indication: Obsessive-compulsive disorder
     Dosage: 20 [MG/D ]/ MATERNAL
     Route: 048
     Dates: start: 20220827, end: 20221207
  2. COMIRNATY [Concomitant]
     Active Substance: TOZINAMERAN
     Indication: COVID-19 immunisation
     Dosage: 1ST VACCINATION PRECONCEPTIONAL CA. 1 MTH
     Route: 030
  3. COMIRNATY [Concomitant]
     Active Substance: TOZINAMERAN
     Dosage: PATERNAL, 2ND VACCINATION 09/2022
     Route: 030
     Dates: start: 202209

REACTIONS (2)
  - Abortion missed [Recovered/Resolved]
  - Maternal exposure via partner during pregnancy [Unknown]
